FAERS Safety Report 13272293 (Version 1)
Quarter: 2017Q1

REPORT INFORMATION
  Report Type: Spontaneous
  Country: FR (occurrence: FR)
  Receive Date: 20170227
  Receipt Date: 20170227
  Transmission Date: 20170428
  Serious: Yes (Other)
  Sender: FDA-Public Use
  Company Number: FR-ROCHE-1898390

PATIENT
  Age: 65 Year
  Sex: Female

DRUGS (4)
  1. AVASTIN [Suspect]
     Active Substance: BEVACIZUMAB
     Indication: GLIOBLASTOMA
     Route: 041
     Dates: start: 20160422, end: 20161116
  2. PRITOR (FRANCE) [Concomitant]
     Active Substance: TELMISARTAN
  3. ZEBINIX [Concomitant]
     Active Substance: ESLICARBAZEPINE ACETATE
  4. SOLUPRED (FRANCE) [Concomitant]
     Active Substance: PREDNISOLONE

REACTIONS (3)
  - Product use issue [Unknown]
  - Off label use [Unknown]
  - Optic neuritis [Recovered/Resolved with Sequelae]

NARRATIVE: CASE EVENT DATE: 201609
